FAERS Safety Report 17540027 (Version 2)
Quarter: 2020Q2

REPORT INFORMATION
  Report Type: Spontaneous
  Country: US (occurrence: US)
  Receive Date: 20200313
  Receipt Date: 20200511
  Transmission Date: 20200713
  Serious: No
  Sender: FDA-Public Use
  Company Number: US-SA-2020SA063450

PATIENT
  Age: 54 Year
  Sex: Female

DRUGS (9)
  1. LAMOTRIGINE. [Concomitant]
     Active Substance: LAMOTRIGINE
  2. PREDNISONE. [Concomitant]
     Active Substance: PREDNISONE
  3. TRAZODONE [Concomitant]
     Active Substance: TRAZODONE HYDROCHLORIDE
  4. DUPIXENT [Suspect]
     Active Substance: DUPILUMAB
     Indication: DERMATITIS ATOPIC
     Dosage: 300 MG, QOW
     Route: 058
     Dates: start: 20190912
  5. CLOCORTOLONE [Concomitant]
  6. FLUTICASONE. [Concomitant]
     Active Substance: FLUTICASONE
  7. HYDROXYZINE HYDROCHLORIDE. [Concomitant]
     Active Substance: HYDROXYZINE HYDROCHLORIDE
  8. MYRBETRIQ [Concomitant]
     Active Substance: MIRABEGRON
  9. DULOXETINE. [Concomitant]
     Active Substance: DULOXETINE

REACTIONS (2)
  - Dermatitis atopic [Not Recovered/Not Resolved]
  - Injection site swelling [Recovered/Resolved]

NARRATIVE: CASE EVENT DATE: 202004
